FAERS Safety Report 5334182-4 (Version None)
Quarter: 2007Q2

REPORT INFORMATION
  Report Type: 
  Country: None (occurrence: None)
  Receive Date: 20070523
  Receipt Date: 20070523
  Transmission Date: 20071010
  Serious: Yes (Disabling)
  Sender: FDA-Public Use
  Company Number: None

PATIENT
  Age: 34 Year
  Sex: Male
  Weight: 86.1834 kg

DRUGS (1)
  1. LEXAPRO [Suspect]
     Indication: ANXIETY
     Dosage: 10MG. ONCE A DAY PO
     Route: 048
     Dates: start: 20060921, end: 20060922

REACTIONS (13)
  - DEREALISATION [None]
  - ECONOMIC PROBLEM [None]
  - FEAR [None]
  - FLUSHING [None]
  - HEADACHE [None]
  - INSOMNIA [None]
  - LOSS OF EMPLOYMENT [None]
  - NAUSEA [None]
  - NERVOUSNESS [None]
  - PARAESTHESIA [None]
  - PARTNER STRESS [None]
  - PSYCHOMOTOR HYPERACTIVITY [None]
  - RESTLESSNESS [None]
